FAERS Safety Report 5765447-X (Version None)
Quarter: 2008Q2

REPORT INFORMATION
  Report Type: 
  Country: None (occurrence: None)
  Receive Date: 20080611
  Receipt Date: 20080603
  Transmission Date: 20081010
  Serious: Yes (Life-Threatening, Hospitalization)
  Sender: FDA-Public Use
  Company Number: A0722425A

PATIENT
  Age: 57 Year
  Sex: Male
  Weight: 99.5 kg

DRUGS (4)
  1. RYTHMOL [Suspect]
     Indication: DRUG USE FOR UNKNOWN INDICATION
     Dosage: 325MG TWICE PER DAY
     Route: 048
     Dates: start: 20070110, end: 20071214
  2. ASPIRIN [Concomitant]
  3. CIALIS [Concomitant]
  4. GLUCOSAMINE + CHONDROITIN [Concomitant]

REACTIONS (8)
  - ARRHYTHMIA [None]
  - ATRIAL FIBRILLATION [None]
  - DYSPNOEA [None]
  - HEART RATE INCREASED [None]
  - HEART RATE IRREGULAR [None]
  - INAPPROPRIATE DEVICE SIGNAL DETECTION [None]
  - VENTRICULAR EXTRASYSTOLES [None]
  - VENTRICULAR TACHYCARDIA [None]
